FAERS Safety Report 8560627-2 (Version None)
Quarter: 2012Q3

REPORT INFORMATION
  Report Type: 
  Country: None (occurrence: None)
  Receive Date: 20120802
  Receipt Date: 20120724
  Transmission Date: 20120928
  Serious: Yes (Other)
  Sender: FDA-Public Use
  Company Number: BG-ASTRAZENECA-2012SE53234

PATIENT
  Age: 47 Year
  Sex: Male

DRUGS (6)
  1. BRILINTA [Suspect]
     Indication: INFARCTION
     Route: 048
     Dates: start: 20120601
  2. METFORMIN HYDROCHLORIDE [Concomitant]
     Indication: DIABETES MELLITUS
  3. METOPROLOL SUCCINATE [Concomitant]
     Indication: INFARCTION
     Route: 048
     Dates: start: 20120501
  4. ASPIRIN [Concomitant]
     Indication: INFARCTION
     Route: 048
     Dates: start: 20120501
  5. CRESTOR [Concomitant]
     Indication: INFARCTION
     Route: 048
     Dates: start: 20120501
  6. METOPROLOL SUCCINATE [Concomitant]
     Route: 048

REACTIONS (1)
  - EXTRASYSTOLES [None]
